FAERS Safety Report 21036738 (Version 1)
Quarter: 2022Q3

REPORT INFORMATION
  Report Type: Spontaneous
  Country: US (occurrence: US)
  Receive Date: 20220702
  Receipt Date: 20220702
  Transmission Date: 20221027
  Serious: No
  Sender: FDA-Public Use
  Company Number: US-TEVA-2022-US-2044712

PATIENT
  Age: 26 Year
  Sex: Female

DRUGS (1)
  1. METOPROLOL TARTRATE [Suspect]
     Active Substance: METOPROLOL TARTRATE
     Indication: Marfan^s syndrome
     Dosage: 25 MILLIGRAM
     Route: 065

REACTIONS (4)
  - Product prescribing issue [Unknown]
  - Throat irritation [Recovered/Resolved]
  - Taste disorder [Recovered/Resolved]
  - Pharyngeal hypoaesthesia [Not Recovered/Not Resolved]
